FAERS Safety Report 5506302-X (Version None)
Quarter: 2007Q4

REPORT INFORMATION
  Report Type: 
  Country: None (occurrence: None)
  Receive Date: 20071105
  Receipt Date: 20071030
  Transmission Date: 20080405
  Serious: Yes (Life-Threatening, Hospitalization)
  Sender: FDA-Public Use
  Company Number: US-GILEAD-2007-0014066

PATIENT
  Sex: Female
  Weight: 44.492 kg

DRUGS (6)
  1. TRUVADA [Suspect]
     Indication: ACQUIRED IMMUNODEFICIENCY SYNDROME
     Route: 048
     Dates: start: 20070529, end: 20071023
  2. NORVIR [Suspect]
     Route: 048
     Dates: start: 20060422, end: 20070528
  3. MEGACE [Concomitant]
     Indication: DECREASED APPETITE
     Route: 048
     Dates: start: 20070226
  4. BACTRIM DS [Concomitant]
     Indication: INFECTION PROPHYLAXIS
     Route: 048
     Dates: start: 20000217
  5. PREZISTA [Concomitant]
     Route: 048
     Dates: start: 20070529, end: 20071023
  6. TMC125 [Concomitant]

REACTIONS (5)
  - ALCOHOLISM [None]
  - ELECTROLYTE IMBALANCE [None]
  - HEPATITIS ACUTE [None]
  - PNEUMOCYSTIS JIROVECI PNEUMONIA [None]
  - RENAL FAILURE ACUTE [None]
